FAERS Safety Report 5793183-2 (Version None)
Quarter: 2008Q2

REPORT INFORMATION
  Report Type: 
  Country: None (occurrence: None)
  Receive Date: 20080626
  Receipt Date: 20080626
  Transmission Date: 20081010
  Serious: Yes (Hospitalization)
  Sender: FDA-Public Use
  Company Number: None

PATIENT
  Sex: Male
  Weight: 113 kg

DRUGS (11)
  1. BEVACIZUMAB (GENENTECH) [Suspect]
     Indication: GLIOBLASTOMA MULTIFORME
     Dosage: 1125 MG
     Dates: start: 20080529, end: 20080612
  2. TEMOZOLOMIDE [Suspect]
     Indication: GLIOBLASTOMA MULTIFORME
     Dosage: 470 MG
     Dates: start: 20080529, end: 20080602
  3. LASIX [Concomitant]
  4. DECADRON [Concomitant]
  5. NEXIUM [Concomitant]
  6. MULTI-VITAMIN [Concomitant]
  7. TYLENOL W/ CODEINE NO. 3 [Concomitant]
  8. SPIRONOLACTONE [Concomitant]
  9. FLUCONAZOLE [Concomitant]
  10. LEVAQUIN [Concomitant]
  11. FLOMAX [Concomitant]

REACTIONS (2)
  - DEEP VEIN THROMBOSIS [None]
  - PULMONARY EMBOLISM [None]
